FAERS Safety Report 12593816 (Version 1)
Quarter: 2016Q3

REPORT INFORMATION
  Report Type: Spontaneous
  Country: GB (occurrence: GB)
  Receive Date: 20160726
  Receipt Date: 20160726
  Transmission Date: 20161109
  Serious: Yes (Disabling, Other)
  Sender: FDA-Public Use
  Company Number: GB-TEVA-677625ACC

PATIENT
  Age: 20 Year
  Sex: Male
  Weight: 99.78 kg

DRUGS (1)
  1. CITALOPRAM [Suspect]
     Active Substance: CITALOPRAM HYDROBROMIDE
     Indication: DEPRESSED MOOD
     Route: 048
     Dates: start: 20141217

REACTIONS (5)
  - Ejaculation disorder [Recovered/Resolved]
  - Emotional poverty [Recovering/Resolving]
  - Memory impairment [Not Recovered/Not Resolved]
  - Muscle twitching [Recovered/Resolved]
  - Abnormal weight gain [Recovered/Resolved with Sequelae]

NARRATIVE: CASE EVENT DATE: 20150101
